FAERS Safety Report 21455905 (Version 2)
Quarter: 2022Q4

REPORT INFORMATION
  Report Type: Spontaneous
  Country: TW (occurrence: TW)
  Receive Date: 20221014
  Receipt Date: 20221206
  Transmission Date: 20230113
  Serious: Yes (Other)
  Sender: FDA-Public Use
  Company Number: TW-MACLEODS PHARMACEUTICALS US LTD-MAC2022037747

PATIENT

DRUGS (10)
  1. PYRAZINAMIDE [Suspect]
     Active Substance: PYRAZINAMIDE
     Indication: Lymph node tuberculosis
     Dosage: 1500 MILLIGRAM, QD (25 MILLIGRAM/KILOGRAM, PEILI PHARMACEUTICALS)
     Route: 048
     Dates: start: 20200707
  2. RIFAMPIN [Suspect]
     Active Substance: RIFAMPIN
     Indication: Lymph node tuberculosis
     Dosage: 10 MILLIGRAM/KILOGRAM
     Route: 065
  3. LEVOFLOXACIN [Suspect]
     Active Substance: LEVOFLOXACIN
     Indication: Lymph node tuberculosis
     Dosage: 750 MILLIGRAM, QD (GENOVATE BIOTECHNOLOGY CO., LTD)
     Route: 048
     Dates: start: 20200807
  4. ISONIAZID [Suspect]
     Active Substance: ISONIAZID
     Indication: Lymph node tuberculosis
     Dosage: 300 MILLIGRAM, QD (5 MILLIGRAM/KILOGRAM, SANOFI TAIWAN CO., LTD)
     Route: 048
     Dates: start: 20200707
  5. ETHAMBUTOL [Suspect]
     Active Substance: ETHAMBUTOL HYDROCHLORIDE
     Indication: Lymph node tuberculosis
     Dosage: 1000 MILLIGRAM, QD (15 MILLIGRAM/KILOGRAM, PEILI PHARMACEUTICALS)
     Route: 048
     Dates: start: 20200707
  6. RIFABUTIN [Suspect]
     Active Substance: RIFABUTIN
     Indication: Lymph node tuberculosis
     Dosage: 300 MILLIGRAM, QD
     Route: 065
  7. INSULIN DETEMIR [Concomitant]
     Active Substance: INSULIN DETEMIR
     Indication: Product used for unknown indication
     Dosage: UNK
     Route: 065
  8. METFORMIN [Concomitant]
     Active Substance: METFORMIN HYDROCHLORIDE
     Indication: Product used for unknown indication
     Dosage: UNK
     Route: 065
  9. GLIMEPIRIDE [Concomitant]
     Active Substance: GLIMEPIRIDE
     Indication: Product used for unknown indication
     Dosage: UNK
     Route: 065
  10. LINAGLIPTIN [Concomitant]
     Active Substance: LINAGLIPTIN
     Indication: Product used for unknown indication
     Dosage: UNK
     Route: 065

REACTIONS (3)
  - Hepatitis [Recovered/Resolved]
  - Drug-induced liver injury [Recovered/Resolved]
  - Drug eruption [Unknown]

NARRATIVE: CASE EVENT DATE: 20200904
